FAERS Safety Report 14896293 (Version 2)
Quarter: 2018Q4

REPORT INFORMATION
  Report Type: Spontaneous
  Country: FR (occurrence: FR)
  Receive Date: 20180515
  Receipt Date: 20181024
  Transmission Date: 20190204
  Serious: Yes (Hospitalization)
  Sender: FDA-Public Use
  Company Number: FR-MERCK KGAA-2047765

PATIENT
  Age: 83 Year
  Sex: Female

DRUGS (1)
  1. EUTHYROX [Suspect]
     Active Substance: LEVOTHYROXINE SODIUM
     Indication: POST PROCEDURAL HYPOTHYROIDISM
     Dates: start: 201705, end: 201709

REACTIONS (20)
  - Fatigue [None]
  - Diarrhoea [None]
  - Mood swings [None]
  - Asthenia [None]
  - Insomnia [None]
  - Hot flush [None]
  - Gait disturbance [None]
  - Constipation [None]
  - Malaise [None]
  - Impatience [None]
  - Blood pressure abnormal [None]
  - Myocardial infarction [None]
  - Aggression [None]
  - Thyroglobulin decreased [None]
  - Vertigo [None]
  - Tinnitus [None]
  - Affective disorder [None]
  - Pain in extremity [None]
  - Impaired work ability [None]
  - Anxiety [None]

NARRATIVE: CASE EVENT DATE: 2017
